FAERS Safety Report 18735380 (Version 1)
Quarter: 2021Q1

REPORT INFORMATION
  Report Type: Spontaneous
  Country: DO (occurrence: DO)
  Receive Date: 20210113
  Receipt Date: 20210113
  Transmission Date: 20210419
  Serious: Yes (Death)
  Sender: FDA-Public Use
  Company Number: NVSC2021DO006381

PATIENT
  Age: 63 Year
  Sex: Male

DRUGS (1)
  1. GLIVEC [Suspect]
     Active Substance: IMATINIB MESYLATE
     Indication: CHRONIC MYELOID LEUKAEMIA
     Dosage: 1 DF
     Route: 065

REACTIONS (4)
  - Pyrexia [Fatal]
  - Chronic myeloid leukaemia recurrent [Fatal]
  - Fatigue [Fatal]
  - Pain [Fatal]

NARRATIVE: CASE EVENT DATE: 202012
